FAERS Safety Report 7442885-0 (Version None)
Quarter: 2011Q2

REPORT INFORMATION
  Report Type: 
  Country: None (occurrence: None)
  Receive Date: 20110428
  Receipt Date: 20110425
  Transmission Date: 20111010
  Serious: Yes (Death)
  Sender: FDA-Public Use
  Company Number: PHHY2011JP33300

PATIENT
  Sex: Male

DRUGS (8)
  1. SIMULECT [Concomitant]
     Indication: RENAL TRANSPLANT
     Dosage: 20 MG
  2. NEORAL [Suspect]
     Indication: RENAL TRANSPLANT
     Dosage: 140 TO 360 MG DAILY
     Route: 048
     Dates: start: 20050930
  3. SIMULECT [Concomitant]
     Dosage: 20 MG
     Dates: start: 20051001
  4. SOLU-MEDROL [Concomitant]
     Dosage: 500 MG
     Route: 042
  5. MEDROL [Concomitant]
     Indication: RENAL TRANSPLANT
     Dosage: UNK
     Route: 048
     Dates: start: 20050930
  6. PREDONINE [Concomitant]
     Dosage: 60 TO 40 MG DAILY
  7. CELLCEPT [Concomitant]
     Indication: RENAL TRANSPLANT
     Dosage: UNK
     Route: 048
     Dates: start: 20050930
  8. CYCLOSPORINE [Concomitant]
     Dosage: 120 MG DAILY
     Route: 042

REACTIONS (4)
  - AORTIC ANEURYSM RUPTURE [None]
  - AORTIC ANEURYSM [None]
  - CARDIO-RESPIRATORY ARREST [None]
  - CARDIAC HYPERTROPHY [None]
